FAERS Safety Report 5750058-2 (Version None)
Quarter: 2008Q2

REPORT INFORMATION
  Report Type: 
  Country: None (occurrence: None)
  Receive Date: 20080527
  Receipt Date: 20080522
  Transmission Date: 20081010
  Serious: Yes (Death)
  Sender: FDA-Public Use
  Company Number: AU-ABBOTT-08P-008-0452886-00

PATIENT
  Sex: Male

DRUGS (6)
  1. KLACID [Suspect]
     Indication: DRUG USE FOR UNKNOWN INDICATION
  2. CANDESARTAN CILEXETIL [Suspect]
     Indication: DRUG USE FOR UNKNOWN INDICATION
     Dosage: DAILY
     Route: 048
  3. COLCHICINE [Suspect]
     Indication: GOUT
     Dosage: DAILY
     Route: 048
     Dates: start: 20070601, end: 20070621
  4. AZITHROMYCIN [Suspect]
     Indication: SEPSIS
     Dates: start: 20070623, end: 20070623
  5. FUROSEMIDE [Suspect]
     Indication: DRUG USE FOR UNKNOWN INDICATION
     Dosage: DAILY
  6. LISINOPRIL [Suspect]
     Indication: DRUG USE FOR UNKNOWN INDICATION
     Dosage: DAILY
     Route: 048

REACTIONS (1)
  - RENAL FAILURE ACUTE [None]
